FAERS Safety Report 12461703 (Version 3)
Quarter: 2016Q2

REPORT INFORMATION
  Report Type: Report from Study
  Country: GB (occurrence: GB)
  Receive Date: 20160613
  Receipt Date: 20160630
  Transmission Date: 20160815
  Serious: Yes (Hospitalization, Other)
  Sender: FDA-Public Use
  Company Number: GB-B.I. PHARMACEUTICALS,INC./RIDGEFIELD-2016-BI-22597II

PATIENT
  Age: 53 Year
  Sex: Female
  Weight: 47.6 kg

DRUGS (45)
  1. MAGNASPARTATE [Concomitant]
     Indication: MAGNESIUM DEFICIENCY
     Dosage: DAILY DOSE: 10MMOL
     Route: 048
     Dates: start: 20160605, end: 20160613
  2. FRAGMIN [Concomitant]
     Active Substance: DALTEPARIN SODIUM
     Indication: PRODUCT USED FOR UNKNOWN INDICATION
     Dosage: 10000 U
     Route: 065
     Dates: start: 20160528
  3. FRAGMIN [Concomitant]
     Active Substance: DALTEPARIN SODIUM
     Route: 065
     Dates: start: 20160408, end: 20160429
  4. MULTIVITAMIN [Concomitant]
     Active Substance: VITAMINS
     Indication: PRODUCT USED FOR UNKNOWN INDICATION
     Route: 065
     Dates: start: 20140421, end: 20160527
  5. TAZOCIN [Concomitant]
     Active Substance: PIPERACILLIN SODIUM\TAZOBACTAM SODIUM
     Indication: PRODUCT USED FOR UNKNOWN INDICATION
     Route: 065
     Dates: start: 20160509, end: 20160602
  6. SANDO K [Concomitant]
     Indication: HYPOKALAEMIA
     Route: 065
     Dates: start: 20160408, end: 20160429
  7. CYCLIZINE [Concomitant]
     Active Substance: CYCLIZINE
     Indication: VOMITING
     Dosage: 150 MG
     Route: 048
     Dates: start: 20140929, end: 20160613
  8. MST [Concomitant]
     Active Substance: MORPHINE SULFATE\NALTREXONE HYDROCHLORIDE
     Indication: PAIN
     Dosage: 10 MG
     Route: 048
     Dates: start: 20160425, end: 20160527
  9. ADCAL D3 [Concomitant]
     Active Substance: CALCIUM CARBONATE\CHOLECALCIFEROL
     Route: 065
     Dates: start: 20140420
  10. BUSCOPAN [Concomitant]
     Active Substance: BUTYLSCOPOLAMINE BROMIDE
     Indication: PRODUCT USED FOR UNKNOWN INDICATION
     Route: 065
     Dates: start: 20150106
  11. MAGNESIUM GLYPHOSPHATE [Concomitant]
     Indication: PRODUCT USED FOR UNKNOWN INDICATION
     Route: 065
     Dates: start: 20141219, end: 2015
  12. POLYPHOSPHATE INFUSION [Concomitant]
     Indication: PRODUCT USED FOR UNKNOWN INDICATION
     Dosage: FORMULATION- INFUSION
     Route: 065
     Dates: start: 20160412, end: 20160412
  13. DEXAMETHASONE. [Concomitant]
     Active Substance: DEXAMETHASONE
     Route: 065
     Dates: start: 20140915
  14. LEVOMEPROMAZINE [Concomitant]
     Active Substance: LEVOMEPROMAZINE
     Indication: VOMITING
     Route: 065
     Dates: start: 20141017
  15. LANSOPRAZOLE. [Concomitant]
     Active Substance: LANSOPRAZOLE
     Dosage: 15 MG
     Route: 048
     Dates: start: 20160408, end: 20160613
  16. OMEPRAZOLE. [Concomitant]
     Active Substance: OMEPRAZOLE
     Indication: PRODUCT USED FOR UNKNOWN INDICATION
     Route: 065
  17. CODEINE PHOSPHATE [Concomitant]
     Active Substance: CODEINE PHOSPHATE
     Indication: PRODUCT USED FOR UNKNOWN INDICATION
     Route: 065
     Dates: start: 20151113, end: 20160527
  18. CYCLOPHOSPHAMIDE. [Suspect]
     Active Substance: CYCLOPHOSPHAMIDE
     Indication: OVARIAN CANCER
     Dosage: 50 MG
     Route: 048
     Dates: start: 20140926, end: 20160527
  19. SANDO K [Concomitant]
     Route: 048
     Dates: start: 20160608, end: 20160613
  20. DEXAMETHASONE. [Concomitant]
     Active Substance: DEXAMETHASONE
     Dosage: 4 MG
     Route: 048
     Dates: end: 20160527
  21. PARACETAMOL [Concomitant]
     Active Substance: ACETAMINOPHEN
     Dosage: 8 G
     Route: 048
     Dates: end: 20160527
  22. SIMVASTATIN. [Concomitant]
     Active Substance: SIMVASTATIN
     Indication: BLOOD CHOLESTEROL
     Dosage: 20 MG
     Route: 048
     Dates: start: 20100205, end: 20160527
  23. ADCAL D3 [Concomitant]
     Active Substance: CALCIUM CARBONATE\CHOLECALCIFEROL
     Indication: CALCIUM DEFICIENCY
     Dosage: DAILY DOSE: 10MMOL
     Route: 048
     Dates: start: 20160605, end: 20160613
  24. DOMPERIDONE [Concomitant]
     Active Substance: DOMPERIDONE
     Indication: PRODUCT USED FOR UNKNOWN INDICATION
     Route: 065
     Dates: start: 20160416
  25. DIFFLAM [Concomitant]
     Active Substance: BENZYDAMINE HYDROCHLORIDE
     Indication: PRODUCT USED FOR UNKNOWN INDICATION
     Route: 065
     Dates: start: 20160318
  26. FLUCONAZOLE. [Concomitant]
     Active Substance: FLUCONAZOLE
     Indication: PRODUCT USED FOR UNKNOWN INDICATION
     Route: 065
     Dates: start: 20160318
  27. LEVOMEPROMAZINE [Concomitant]
     Active Substance: LEVOMEPROMAZINE
     Indication: NAUSEA
     Dosage: 6.25 MG
     Route: 048
     Dates: start: 20160415, end: 20160527
  28. LEVOMEPROMAZINE [Concomitant]
     Active Substance: LEVOMEPROMAZINE
     Dosage: 6.25 MCG
     Route: 048
     Dates: end: 20160613
  29. LANSOPRAZOLE. [Concomitant]
     Active Substance: LANSOPRAZOLE
     Indication: DRUG THERAPY
     Dosage: 15 MG
     Route: 048
     Dates: end: 20160527
  30. ORAMORPH [Concomitant]
     Active Substance: MORPHINE SULFATE
     Indication: PRODUCT USED FOR UNKNOWN INDICATION
     Route: 065
     Dates: start: 20150106
  31. PARACETAMOL [Concomitant]
     Active Substance: ACETAMINOPHEN
     Indication: PAIN
     Dosage: 8 G
     Route: 048
     Dates: start: 201403, end: 20160613
  32. MAGNASPARTATE [Concomitant]
     Route: 065
     Dates: start: 20160421, end: 201605
  33. OXYCODONE [Concomitant]
     Active Substance: OXYCODONE
     Indication: PRODUCT USED FOR UNKNOWN INDICATION
     Route: 065
     Dates: start: 20160528
  34. LOPERAMIDE [Concomitant]
     Active Substance: LOPERAMIDE
     Indication: PRODUCT USED FOR UNKNOWN INDICATION
     Route: 065
  35. DOMPERIDONE [Concomitant]
     Active Substance: DOMPERIDONE
     Route: 065
     Dates: start: 20100115, end: 201509
  36. NYSTATIN. [Concomitant]
     Active Substance: NYSTATIN
     Indication: PRODUCT USED FOR UNKNOWN INDICATION
     Route: 065
     Dates: start: 20160318
  37. MOVICOL [Concomitant]
     Active Substance: POLYETHYLENE GLYCOL 3350\POTASSIUM CHLORIDE\SODIUM BICARBONATE\SODIUM CHLORIDE
     Indication: PRODUCT USED FOR UNKNOWN INDICATION
     Route: 065
     Dates: start: 201207, end: 2015
  38. METOCLOPRAMIDE. [Concomitant]
     Active Substance: METOCLOPRAMIDE
     Indication: PRODUCT USED FOR UNKNOWN INDICATION
     Route: 065
     Dates: start: 20140929, end: 20160408
  39. INVITA D3 [Concomitant]
     Indication: PRODUCT USED FOR UNKNOWN INDICATION
     Route: 065
     Dates: start: 20160417, end: 20160419
  40. CYCLIZINE [Concomitant]
     Active Substance: CYCLIZINE
     Indication: NAUSEA
     Dosage: 150 MG
     Route: 048
     Dates: end: 20160527
  41. NITROFURANTOIN. [Concomitant]
     Active Substance: NITROFURANTOIN
     Indication: PRODUCT USED FOR UNKNOWN INDICATION
     Route: 065
     Dates: start: 20160316, end: 20160324
  42. METFORMIN [Concomitant]
     Active Substance: METFORMIN HYDROCHLORIDE
     Indication: PRODUCT USED FOR UNKNOWN INDICATION
     Route: 065
  43. BIBF 1120 [Suspect]
     Active Substance: NINTEDANIB
     Indication: OVARIAN CANCER
     Dosage: 200 MG
     Route: 048
     Dates: start: 20140926
  44. SANDO K [Concomitant]
     Indication: CALCIUM DEFICIENCY
     Route: 065
     Dates: start: 20160601, end: 20160602
  45. DEXAMETHASONE. [Concomitant]
     Active Substance: DEXAMETHASONE
     Indication: UNEVALUABLE THERAPY
     Dosage: 4 MG
     Route: 048
     Dates: start: 20160408, end: 20160613

REACTIONS (49)
  - Hypotension [Recovered/Resolved]
  - Diarrhoea [Recovered/Resolved with Sequelae]
  - Dehydration [Recovered/Resolved]
  - Febrile neutropenia [Unknown]
  - Constipation [Unknown]
  - Mucosal inflammation [Not Recovered/Not Resolved]
  - Hypomagnesaemia [Not Recovered/Not Resolved]
  - Neutrophil count decreased [Recovered/Resolved]
  - Neutropenic infection [Unknown]
  - Weight decreased [Not Recovered/Not Resolved]
  - Anastomotic leak [Unknown]
  - Rash [Unknown]
  - Vomiting [Not Recovered/Not Resolved]
  - Dehydration [Not Recovered/Not Resolved]
  - International normalised ratio increased [Unknown]
  - Fistula [Unknown]
  - Abscess [Unknown]
  - Hypertension [Unknown]
  - Vitamin D deficiency [Not Recovered/Not Resolved]
  - Vomiting [Recovered/Resolved]
  - Anaemia [Not Recovered/Not Resolved]
  - Alanine aminotransferase increased [Not Recovered/Not Resolved]
  - Perforation [Unknown]
  - Fatigue [Not Recovered/Not Resolved]
  - Hypokalaemia [Not Recovered/Not Resolved]
  - Diarrhoea [Not Recovered/Not Resolved]
  - Acute kidney injury [Recovered/Resolved]
  - Blood creatinine increased [Recovered/Resolved]
  - Anaemia [Not Recovered/Not Resolved]
  - Activated partial thromboplastin time prolonged [Unknown]
  - Diarrhoea [Recovered/Resolved with Sequelae]
  - Decreased appetite [Not Recovered/Not Resolved]
  - Alopecia [Not Recovered/Not Resolved]
  - Hypophosphataemia [Not Recovered/Not Resolved]
  - White blood cell count decreased [Recovered/Resolved]
  - Vomiting [Recovered/Resolved with Sequelae]
  - Hypotension [Not Recovered/Not Resolved]
  - Blood alkaline phosphatase increased [Unknown]
  - Platelet count decreased [Recovered/Resolved]
  - White blood cell count decreased [Recovered/Resolved]
  - Abdominal pain [Not Recovered/Not Resolved]
  - Hypocalcaemia [Not Recovered/Not Resolved]
  - Nausea [Not Recovered/Not Resolved]
  - Infection [Recovered/Resolved]
  - Hydronephrosis [Recovered/Resolved]
  - Deep vein thrombosis [Not Recovered/Not Resolved]
  - Blood bilirubin increased [Unknown]
  - Vomiting [Recovered/Resolved with Sequelae]
  - Nausea [Not Recovered/Not Resolved]

NARRATIVE: CASE EVENT DATE: 20141017
